FAERS Safety Report 7685788-9 (Version None)
Quarter: 2011Q3

REPORT INFORMATION
  Report Type: 
  Country: None (occurrence: None)
  Receive Date: 20110815
  Receipt Date: 20110815
  Transmission Date: 20111222
  Serious: Yes (Other)
  Sender: FDA-Public Use
  Company Number: None

PATIENT
  Sex: Female
  Weight: 95.254 kg

DRUGS (1)
  1. SIMAVASTATIN [Suspect]
     Dosage: 20 MG
     Route: 048
     Dates: start: 20110512, end: 20110812

REACTIONS (4)
  - MUSCLE TWITCHING [None]
  - MUSCLE SPASMS [None]
  - RESTLESSNESS [None]
  - PAIN IN EXTREMITY [None]
